FAERS Safety Report 10482601 (Version 1)
Quarter: 2014Q3

REPORT INFORMATION
  Report Type: Spontaneous
  Country: US (occurrence: US)
  Receive Date: 20140929
  Receipt Date: 20140929
  Transmission Date: 20150326
  Serious: No
  Sender: FDA-Public Use
  Company Number: US-009507513-1409USA014495

PATIENT
  Sex: Male

DRUGS (1)
  1. PRINIVIL [Suspect]
     Active Substance: LISINOPRIL

REACTIONS (1)
  - Malaise [Unknown]
